FAERS Safety Report 15112038 (Version 1)
Quarter: 2018Q3

REPORT INFORMATION
  Report Type: Spontaneous
  Country: US (occurrence: US)
  Receive Date: 20180705
  Receipt Date: 20180705
  Transmission Date: 20181010
  Serious: Yes (Life-Threatening, Hospitalization, Other)
  Sender: FDA-Public Use
  Company Number: US-ASTRAZENECA-2013SE38112

PATIENT
  Sex: Male

DRUGS (13)
  1. BYETTA [Suspect]
     Active Substance: EXENATIDE
     Route: 065
     Dates: start: 200710, end: 201111
  2. LISINOPRIL. [Concomitant]
     Active Substance: LISINOPRIL
  3. DIPRIVAN [Concomitant]
     Active Substance: PROPOFOL
     Indication: SEIZURE
  4. PRAVACHOL [Concomitant]
     Active Substance: PRAVASTATIN SODIUM
  5. NIFEDIPINE. [Concomitant]
     Active Substance: NIFEDIPINE
  6. DILANTIN [Concomitant]
     Active Substance: PHENYTOIN
     Indication: SEIZURE
  7. ATENOLOL. [Concomitant]
     Active Substance: ATENOLOL
  8. METFORMIN [Concomitant]
     Active Substance: METFORMIN HYDROCHLORIDE
  9. GLIMEPIRIDE. [Concomitant]
     Active Substance: GLIMEPIRIDE
  10. ATIVAN [Concomitant]
     Active Substance: LORAZEPAM
  11. ASPIRIN. [Concomitant]
     Active Substance: ASPIRIN
  12. FLUOXETINE [Concomitant]
     Active Substance: FLUOXETINE HYDROCHLORIDE
  13. HYDRALAZINE [Concomitant]
     Active Substance: HYDRALAZINE HYDROCHLORIDE

REACTIONS (5)
  - Seizure [Unknown]
  - Diabetic ketoacidosis [Unknown]
  - Acute kidney injury [Unknown]
  - Respiratory failure [Unknown]
  - Pancreatitis acute [Unknown]
